FAERS Safety Report 5247573-7 (Version None)
Quarter: 2007Q1

REPORT INFORMATION
  Report Type: 
  Country: None (occurrence: None)
  Receive Date: 20070223
  Receipt Date: 20070223
  Transmission Date: 20070707
  Serious: No
  Sender: FDA-Public Use
  Company Number: None

PATIENT
  Age: 51 Year
  Sex: Female

DRUGS (2)
  1. KETEK [Suspect]
     Dates: start: 20050329, end: 20050403
  2. ORTHO-NOVUM [Concomitant]

REACTIONS (22)
  - ABDOMINAL DISTENSION [None]
  - ABDOMINAL PAIN UPPER [None]
  - ASCITES [None]
  - BLOOD ALKALINE PHOSPHATASE INCREASED [None]
  - BLOOD IMMUNOGLOBULIN A INCREASED [None]
  - BLOOD IMMUNOGLOBULIN M INCREASED [None]
  - CHRONIC HEPATIC FAILURE [None]
  - DIARRHOEA [None]
  - EPSTEIN-BARR VIRUS ANTIGEN POSITIVE [None]
  - FATIGUE [None]
  - HEPATIC CIRRHOSIS [None]
  - HEPATIC NEOPLASM MALIGNANT [None]
  - HYDROTHORAX [None]
  - HYPONATRAEMIA [None]
  - LIVER INJURY [None]
  - LIVER TRANSPLANT REJECTION [None]
  - NAUSEA [None]
  - OEDEMA PERIPHERAL [None]
  - PLEURAL EFFUSION [None]
  - PROTHROMBIN TIME PROLONGED [None]
  - SPLENOMEGALY [None]
  - STOMACH DISCOMFORT [None]
